FAERS Safety Report 6844147-9 (Version None)
Quarter: 2010Q3

REPORT INFORMATION
  Report Type: 
  Country: None (occurrence: None)
  Receive Date: 20100715
  Receipt Date: 20100709
  Transmission Date: 20110219
  Serious: Yes (Other)
  Sender: FDA-Public Use
  Company Number: A0867074A

PATIENT
  Age: 17 Year
  Sex: Female

DRUGS (4)
  1. EPIVIR [Suspect]
     Indication: ANTIVIRAL TREATMENT
     Dosage: 300MG PER DAY
     Route: 048
     Dates: start: 20100216, end: 20100604
  2. COMBIVIR [Suspect]
     Indication: ANTIVIRAL TREATMENT
     Dosage: 2TAB PER DAY
     Route: 048
     Dates: start: 20100604
  3. VIREAD [Suspect]
     Indication: ANTIVIRAL TREATMENT
     Dosage: 300MG PER DAY
     Route: 048
     Dates: start: 20100216
  4. KALETRA [Suspect]
     Indication: ANTIVIRAL TREATMENT
     Dosage: 800MG PER DAY
     Route: 048
     Dates: start: 20100216

REACTIONS (2)
  - ABORTION INDUCED [None]
  - DRUG EXPOSURE DURING PREGNANCY [None]
